FAERS Safety Report 4454745-8 (Version None)
Quarter: 2004Q3

REPORT INFORMATION
  Report Type: 
  Country: None (occurrence: None)
  Receive Date: 20040920
  Receipt Date: 20040920
  Transmission Date: 20050211
  Serious: No
  Sender: FDA-Public Use
  Company Number: None

PATIENT
  Age: 51 Year
  Sex: Female
  Weight: 74.8435 kg

DRUGS (12)
  1. DOMPERIDONE  10 MG  JANSSEN [Suspect]
     Indication: IMPAIRED GASTRIC EMPTYING
     Dosage: 30 MG QID ORAL
     Route: 048
     Dates: start: 20020615, end: 20040917
  2. SYNTHROID [Concomitant]
  3. PREVACID [Concomitant]
  4. ZELNORM [Concomitant]
  5. DIOVAN [Concomitant]
  6. PLAQUENIL [Concomitant]
  7. WELCHOL [Concomitant]
  8. SINGULAIR [Concomitant]
  9. ZYRTEC [Concomitant]
  10. COMBIVENT [Concomitant]
  11. FLONASE [Concomitant]
  12. RESTATIS [Concomitant]

REACTIONS (1)
  - BREAST CANCER [None]
